FAERS Safety Report 12375881 (Version 1)
Quarter: 2016Q2

REPORT INFORMATION
  Report Type: Spontaneous
  Country: BR (occurrence: BR)
  Receive Date: 20160517
  Receipt Date: 20160517
  Transmission Date: 20160815
  Serious: Yes (Hospitalization, Other)
  Sender: FDA-Public Use
  Company Number: BR-GLAXOSMITHKLINE-BR2016GSK068687

PATIENT
  Sex: Male
  Weight: 75 kg

DRUGS (2)
  1. COMBODART [Suspect]
     Active Substance: DUTASTERIDE\TAMSULOSIN
     Indication: URINARY RETENTION
  2. COMBODART [Suspect]
     Active Substance: DUTASTERIDE\TAMSULOSIN
     Indication: PROSTATOMEGALY
     Dosage: 1 TABLET, QD
     Route: 048

REACTIONS (3)
  - Dysphagia [Unknown]
  - Choking sensation [Unknown]
  - Cerebrovascular accident [Unknown]
